FAERS Safety Report 24262621 (Version 1)
Quarter: 2024Q3

REPORT INFORMATION
  Report Type: Spontaneous
  Country: CA (occurrence: CA)
  Receive Date: 20240829
  Receipt Date: 20240829
  Transmission Date: 20241016
  Serious: Yes (Life-Threatening, Hospitalization, Other)
  Sender: SANDOZ
  Company Number: CA-002147023-NVSC2021CA274520

PATIENT
  Age: 77 Year
  Sex: Female

DRUGS (444)
  1. AMLODIPINE BESYLATE [Suspect]
     Active Substance: AMLODIPINE BESYLATE
     Indication: Angina pectoris
     Dosage: 5 MG, QD
     Route: 065
  2. AMLODIPINE BESYLATE [Suspect]
     Active Substance: AMLODIPINE BESYLATE
     Indication: Coronary artery disease
     Dosage: 5 MG
     Route: 065
  3. AMLODIPINE BESYLATE [Suspect]
     Active Substance: AMLODIPINE BESYLATE
     Indication: Constipation
     Dosage: UNK
     Route: 065
  4. AMLODIPINE BESYLATE [Suspect]
     Active Substance: AMLODIPINE BESYLATE
     Indication: Hypertension
     Dosage: UNK
     Route: 065
  5. AMLODIPINE BESYLATE [Suspect]
     Active Substance: AMLODIPINE BESYLATE
     Dosage: UNK
     Route: 065
  6. AMLODIPINE BESYLATE [Suspect]
     Active Substance: AMLODIPINE BESYLATE
     Dosage: UNK
     Route: 065
  7. ACEBUTOLOL HYDROCHLORIDE [Suspect]
     Active Substance: ACEBUTOLOL HYDROCHLORIDE
     Indication: Chest pain
     Dosage: 100 MG, QD
     Route: 065
  8. ACEBUTOLOL HYDROCHLORIDE [Suspect]
     Active Substance: ACEBUTOLOL HYDROCHLORIDE
     Dosage: 100 MG, QD
     Route: 065
  9. ACEBUTOLOL HYDROCHLORIDE [Suspect]
     Active Substance: ACEBUTOLOL HYDROCHLORIDE
     Dosage: 100 MG, QD
     Route: 065
  10. ACEBUTOLOL HYDROCHLORIDE [Suspect]
     Active Substance: ACEBUTOLOL HYDROCHLORIDE
     Dosage: 100 MG, QD
     Route: 065
  11. ACEBUTOLOL HYDROCHLORIDE [Suspect]
     Active Substance: ACEBUTOLOL HYDROCHLORIDE
     Dosage: 100 MG
     Route: 065
  12. ACEBUTOLOL HYDROCHLORIDE [Suspect]
     Active Substance: ACEBUTOLOL HYDROCHLORIDE
     Dosage: 100 MG (1 EVERY 12 HOURS)
     Route: 065
  13. ACEBUTOLOL HYDROCHLORIDE [Suspect]
     Active Substance: ACEBUTOLOL HYDROCHLORIDE
     Dosage: 100 MG (1 EVERY 12 HOURS)
     Route: 065
  14. ACEBUTOLOL HYDROCHLORIDE [Suspect]
     Active Substance: ACEBUTOLOL HYDROCHLORIDE
     Dosage: 100 MG (1 EVERY 12 HOURS)
     Route: 065
  15. ACEBUTOLOL HYDROCHLORIDE [Suspect]
     Active Substance: ACEBUTOLOL HYDROCHLORIDE
     Dosage: 100 MG (1 EVERY 12 HOURS)
     Route: 065
  16. ACEBUTOLOL HYDROCHLORIDE [Suspect]
     Active Substance: ACEBUTOLOL HYDROCHLORIDE
     Dosage: 100 MG (1 EVERY 12 HOURS)
     Route: 065
  17. ACEBUTOLOL HYDROCHLORIDE [Suspect]
     Active Substance: ACEBUTOLOL HYDROCHLORIDE
     Dosage: 100 MG (1 EVERY 12 HOURS)
     Route: 065
  18. ACEBUTOLOL HYDROCHLORIDE [Suspect]
     Active Substance: ACEBUTOLOL HYDROCHLORIDE
     Dosage: 100 MG (1 EVERY 12 HOURS)
     Route: 065
  19. ACEBUTOLOL HYDROCHLORIDE [Suspect]
     Active Substance: ACEBUTOLOL HYDROCHLORIDE
     Dosage: 100 MG (1 EVERY 12 HOURS)
     Route: 065
  20. ACEBUTOLOL HYDROCHLORIDE [Suspect]
     Active Substance: ACEBUTOLOL HYDROCHLORIDE
     Dosage: 100 MG (1 EVERY 12 HOURS)
     Route: 065
  21. ACEBUTOLOL HYDROCHLORIDE [Suspect]
     Active Substance: ACEBUTOLOL HYDROCHLORIDE
     Dosage: 100 MG (1 EVERY 12 HOURS)
     Route: 065
  22. ACEBUTOLOL HYDROCHLORIDE [Suspect]
     Active Substance: ACEBUTOLOL HYDROCHLORIDE
     Dosage: 100 MG (1 EVERY 12 HOURS)
     Route: 065
  23. ACEBUTOLOL HYDROCHLORIDE [Suspect]
     Active Substance: ACEBUTOLOL HYDROCHLORIDE
     Dosage: 100 MG (1 EVERY 12 HOURS)
     Route: 065
  24. ACEBUTOLOL HYDROCHLORIDE [Suspect]
     Active Substance: ACEBUTOLOL HYDROCHLORIDE
     Dosage: 100 MG (1 EVERY 12 HOURS)
     Route: 065
  25. ACEBUTOLOL HYDROCHLORIDE [Suspect]
     Active Substance: ACEBUTOLOL HYDROCHLORIDE
     Dosage: 100 MG (1 EVERY 12 HOURS)
     Route: 065
  26. ACEBUTOLOL HYDROCHLORIDE [Suspect]
     Active Substance: ACEBUTOLOL HYDROCHLORIDE
     Dosage: 100 MG (1 EVERY 12 HOURS)
     Route: 065
  27. ACEBUTOLOL HYDROCHLORIDE [Suspect]
     Active Substance: ACEBUTOLOL HYDROCHLORIDE
     Dosage: 100 MG (1 EVERY 12 HOURS)
     Route: 065
  28. ACEBUTOLOL HYDROCHLORIDE [Suspect]
     Active Substance: ACEBUTOLOL HYDROCHLORIDE
     Dosage: 100 MG (1 EVERY 12 HOURS)
     Route: 065
  29. ACEBUTOLOL HYDROCHLORIDE [Suspect]
     Active Substance: ACEBUTOLOL HYDROCHLORIDE
     Indication: Chronic obstructive pulmonary disease
     Dosage: 200 MG, QD
     Route: 065
  30. ACEBUTOLOL HYDROCHLORIDE [Suspect]
     Active Substance: ACEBUTOLOL HYDROCHLORIDE
     Dosage: 200 MG, QD
     Route: 065
  31. ACEBUTOLOL HYDROCHLORIDE [Suspect]
     Active Substance: ACEBUTOLOL HYDROCHLORIDE
     Dosage: 200 MG, QD
     Route: 065
  32. ACEBUTOLOL HYDROCHLORIDE [Suspect]
     Active Substance: ACEBUTOLOL HYDROCHLORIDE
     Dosage: 200 MG, QD
     Route: 065
  33. ACEBUTOLOL HYDROCHLORIDE [Suspect]
     Active Substance: ACEBUTOLOL HYDROCHLORIDE
     Dosage: 200 MG (1 EVERY 12 HOURS)
     Route: 065
  34. ACEBUTOLOL HYDROCHLORIDE [Suspect]
     Active Substance: ACEBUTOLOL HYDROCHLORIDE
     Dosage: 200 MG (1 EVERY 12 HOURS)
     Route: 065
  35. ACEBUTOLOL HYDROCHLORIDE [Suspect]
     Active Substance: ACEBUTOLOL HYDROCHLORIDE
     Dosage: 200 MG (1 EVERY 12 HOURS)
     Route: 065
  36. ACEBUTOLOL HYDROCHLORIDE [Suspect]
     Active Substance: ACEBUTOLOL HYDROCHLORIDE
     Dosage: 200 MG (1 EVERY 12 HOURS)
     Route: 065
  37. ACEBUTOLOL HYDROCHLORIDE [Suspect]
     Active Substance: ACEBUTOLOL HYDROCHLORIDE
     Dosage: 200 MG (1 EVERY 12 HOURS)
     Route: 065
  38. ACEBUTOLOL HYDROCHLORIDE [Suspect]
     Active Substance: ACEBUTOLOL HYDROCHLORIDE
     Dosage: 200 MG (1 EVERY 12 HOURS)
     Route: 065
  39. ACEBUTOLOL HYDROCHLORIDE [Suspect]
     Active Substance: ACEBUTOLOL HYDROCHLORIDE
     Dosage: 200 MG (1 EVERY 12 HOURS)
     Route: 065
  40. ACEBUTOLOL HYDROCHLORIDE [Suspect]
     Active Substance: ACEBUTOLOL HYDROCHLORIDE
     Dosage: 200 MG (1 EVERY 12 HOURS)
     Route: 065
  41. ACEBUTOLOL HYDROCHLORIDE [Suspect]
     Active Substance: ACEBUTOLOL HYDROCHLORIDE
     Dosage: 200 MG (1 EVERY 12 HOURS)
     Route: 065
  42. ACEBUTOLOL HYDROCHLORIDE [Suspect]
     Active Substance: ACEBUTOLOL HYDROCHLORIDE
     Dosage: 200 MG (1 EVERY 12 HOURS)
     Route: 065
  43. ACEBUTOLOL HYDROCHLORIDE [Suspect]
     Active Substance: ACEBUTOLOL HYDROCHLORIDE
     Dosage: 200 MG (1 EVERY 12 HOURS)
     Route: 065
  44. ACEBUTOLOL HYDROCHLORIDE [Suspect]
     Active Substance: ACEBUTOLOL HYDROCHLORIDE
     Dosage: 200 MG (1 EVERY 12 HOURS)
     Route: 065
  45. ACEBUTOLOL HYDROCHLORIDE [Suspect]
     Active Substance: ACEBUTOLOL HYDROCHLORIDE
     Dosage: 200 MG (1 EVERY 12 HOURS)
     Route: 065
  46. ACEBUTOLOL HYDROCHLORIDE [Suspect]
     Active Substance: ACEBUTOLOL HYDROCHLORIDE
     Dosage: 200 MG (1 EVERY 12 HOURS)
     Route: 065
  47. ACEBUTOLOL HYDROCHLORIDE [Suspect]
     Active Substance: ACEBUTOLOL HYDROCHLORIDE
     Dosage: 200 MG (1 EVERY 4.8 HOURS)
     Route: 065
  48. ACEBUTOLOL HYDROCHLORIDE [Suspect]
     Active Substance: ACEBUTOLOL HYDROCHLORIDE
     Indication: Angina pectoris
     Dosage: 400 MG, QD
     Route: 065
  49. ACEBUTOLOL HYDROCHLORIDE [Suspect]
     Active Substance: ACEBUTOLOL HYDROCHLORIDE
     Indication: Asthma
     Dosage: 400 MG, QD
     Route: 065
  50. ACEBUTOLOL HYDROCHLORIDE [Suspect]
     Active Substance: ACEBUTOLOL HYDROCHLORIDE
     Indication: Coronary artery disease
     Dosage: 400 MG, QD
     Route: 065
  51. ACEBUTOLOL HYDROCHLORIDE [Suspect]
     Active Substance: ACEBUTOLOL HYDROCHLORIDE
     Indication: Hypertension
     Dosage: 400 MG, QD
     Route: 065
  52. ACEBUTOLOL HYDROCHLORIDE [Suspect]
     Active Substance: ACEBUTOLOL HYDROCHLORIDE
     Dosage: 400 MG, QD
     Route: 065
  53. ACEBUTOLOL HYDROCHLORIDE [Suspect]
     Active Substance: ACEBUTOLOL HYDROCHLORIDE
     Dosage: 50 MG (1 EVERY 12 HOURS)
     Route: 065
  54. ACEBUTOLOL HYDROCHLORIDE [Suspect]
     Active Substance: ACEBUTOLOL HYDROCHLORIDE
     Dosage: 50 MG (1 EVERY 12 HOURS)
     Route: 065
  55. ACEBUTOLOL HYDROCHLORIDE [Suspect]
     Active Substance: ACEBUTOLOL HYDROCHLORIDE
     Dosage: 50 MG (1 EVERY 12 HOURS)
     Route: 065
  56. ACEBUTOLOL HYDROCHLORIDE [Suspect]
     Active Substance: ACEBUTOLOL HYDROCHLORIDE
     Dosage: UNK
     Route: 065
  57. ASPIRIN [Suspect]
     Active Substance: ASPIRIN
     Indication: Angina pectoris
     Dosage: 1 DOSAGE FORM (1 EVERY 12 HOURS)
     Route: 065
  58. ASPIRIN [Suspect]
     Active Substance: ASPIRIN
     Dosage: 1 DOSAGE FORM (1 EVERY 12 HOURS)
     Route: 065
  59. ASPIRIN [Suspect]
     Active Substance: ASPIRIN
     Indication: Cerebrovascular accident
     Dosage: UNK
     Route: 065
  60. ASPIRIN [Suspect]
     Active Substance: ASPIRIN
     Indication: Coronary artery disease
     Dosage: UNK
     Route: 065
  61. ASPIRIN [Suspect]
     Active Substance: ASPIRIN
     Indication: Hypertension
     Dosage: UNK
     Route: 065
  62. AGGRENOX [Suspect]
     Active Substance: ASPIRIN\DIPYRIDAMOLE
     Dosage: 1 DOSAGE FORM, QD, IMMEDIATE AND EXTENDED RELEASE
     Route: 065
  63. AGGRENOX [Suspect]
     Active Substance: ASPIRIN\DIPYRIDAMOLE
     Indication: Cerebrovascular accident
     Dosage: 1 DOSAGE FORM, BID, IMMEDIATE AND EXTENDED RELEASE
     Route: 065
  64. AGGRENOX [Suspect]
     Active Substance: ASPIRIN\DIPYRIDAMOLE
     Dosage: 1 DOSAGE FORM (EVERY 12 HOURS)
     Route: 065
  65. AGGRENOX [Suspect]
     Active Substance: ASPIRIN\DIPYRIDAMOLE
     Dosage: 2 DOSAGE FORM, QD
     Route: 065
  66. AGGRENOX [Suspect]
     Active Substance: ASPIRIN\DIPYRIDAMOLE
     Dosage: 2 DOSAGE FORM
     Route: 065
  67. AGGRENOX [Suspect]
     Active Substance: ASPIRIN\DIPYRIDAMOLE
     Dosage: 2 DOSAGE FORM, (1 EVERY 1 DAYS)
     Route: 065
  68. AGGRENOX [Suspect]
     Active Substance: ASPIRIN\DIPYRIDAMOLE
     Dosage: 50.0 DOSAGE FORM, QD
     Route: 065
  69. AGGRENOX [Suspect]
     Active Substance: ASPIRIN\DIPYRIDAMOLE
     Dosage: UNK
     Route: 065
  70. CARBAMAZEPINE [Suspect]
     Active Substance: CARBAMAZEPINE
     Dosage: 1 DOSAGE FORM  (1 EVERY 12 HOURS)
     Route: 065
  71. CARBAMAZEPINE [Suspect]
     Active Substance: CARBAMAZEPINE
     Dosage: 10 MG, QD
     Route: 065
  72. CARBAMAZEPINE [Suspect]
     Active Substance: CARBAMAZEPINE
     Indication: Fibromyalgia
     Dosage: 100 MG, QD
     Route: 065
  73. CARBAMAZEPINE [Suspect]
     Active Substance: CARBAMAZEPINE
     Dosage: 100 MG, QD
     Route: 065
  74. CARBAMAZEPINE [Suspect]
     Active Substance: CARBAMAZEPINE
     Dosage: 100 MG, QD
     Route: 065
  75. CARBAMAZEPINE [Suspect]
     Active Substance: CARBAMAZEPINE
     Dosage: 100 MG
     Route: 065
  76. CARBAMAZEPINE [Suspect]
     Active Substance: CARBAMAZEPINE
     Dosage: 100 MG (1 EVERY 12 HOURS)
     Route: 065
  77. CARBAMAZEPINE [Suspect]
     Active Substance: CARBAMAZEPINE
     Dosage: 2 DOSAGE FORM  (1 EVERY 12 HOURS)
     Route: 065
  78. CARBAMAZEPINE [Suspect]
     Active Substance: CARBAMAZEPINE
     Indication: Seizure
     Dosage: 200 MG, QD
     Route: 065
  79. CARBAMAZEPINE [Suspect]
     Active Substance: CARBAMAZEPINE
     Dosage: 200 MG, QD
     Route: 065
  80. CARBAMAZEPINE [Suspect]
     Active Substance: CARBAMAZEPINE
     Dosage: 200 MG, QD
     Route: 065
  81. CARBAMAZEPINE [Suspect]
     Active Substance: CARBAMAZEPINE
     Dosage: 200 MG, QD
     Route: 065
  82. CARBAMAZEPINE [Suspect]
     Active Substance: CARBAMAZEPINE
     Dosage: 200 MG, QD
     Route: 065
  83. CARBAMAZEPINE [Suspect]
     Active Substance: CARBAMAZEPINE
     Dosage: 200 MG, QD
     Route: 065
  84. CARBAMAZEPINE [Suspect]
     Active Substance: CARBAMAZEPINE
     Dosage: 200 MG (1 EVERY 12 HOURS)
     Route: 065
  85. CARBAMAZEPINE [Suspect]
     Active Substance: CARBAMAZEPINE
     Indication: Seizure prophylaxis
     Dosage: 500 MG, QD
     Route: 065
  86. CARBAMAZEPINE [Suspect]
     Active Substance: CARBAMAZEPINE
     Dosage: 500 MG, QD
     Route: 065
  87. CARBAMAZEPINE [Suspect]
     Active Substance: CARBAMAZEPINE
     Dosage: 500 MG, QD
     Route: 065
  88. CARBAMAZEPINE [Suspect]
     Active Substance: CARBAMAZEPINE
     Dosage: UNK
     Route: 065
  89. CARBAMAZEPINE [Suspect]
     Active Substance: CARBAMAZEPINE
     Dosage: UNK
     Route: 065
  90. CARBAMAZEPINE [Suspect]
     Active Substance: CARBAMAZEPINE
     Dosage: UNK
     Route: 065
  91. CARBAMAZEPINE [Suspect]
     Active Substance: CARBAMAZEPINE
     Dosage: UNK
     Route: 065
  92. DILTIAZEM HYDROCHLORIDE [Suspect]
     Active Substance: DILTIAZEM HYDROCHLORIDE
     Dosage: 15 MG, QD (EVERY 24 HOURS))
     Route: 065
  93. DILTIAZEM HYDROCHLORIDE [Suspect]
     Active Substance: DILTIAZEM HYDROCHLORIDE
     Indication: Angina pectoris
     Dosage: 360 MG, QD (EVERY 24 HOURS)
     Route: 065
  94. DILTIAZEM HYDROCHLORIDE [Suspect]
     Active Substance: DILTIAZEM HYDROCHLORIDE
     Indication: Chest pain
     Dosage: 360 MG, QD (EVERY 24 HOURS)
     Route: 065
  95. DILTIAZEM HYDROCHLORIDE [Suspect]
     Active Substance: DILTIAZEM HYDROCHLORIDE
     Indication: Hypertension
     Dosage: 360 MG, QD (EVERY 24 HOURS)
     Route: 065
  96. DILTIAZEM HYDROCHLORIDE [Suspect]
     Active Substance: DILTIAZEM HYDROCHLORIDE
     Dosage: 360 MG, QD (EVERY 24 HOURS)
     Route: 065
  97. DILTIAZEM HYDROCHLORIDE [Suspect]
     Active Substance: DILTIAZEM HYDROCHLORIDE
     Dosage: 360 MG
     Route: 042
  98. DILTIAZEM HYDROCHLORIDE [Suspect]
     Active Substance: DILTIAZEM HYDROCHLORIDE
     Dosage: 360 MG
     Route: 065
  99. DILTIAZEM HYDROCHLORIDE [Suspect]
     Active Substance: DILTIAZEM HYDROCHLORIDE
     Indication: Coronary artery disease
     Dosage: 500 MG, QD
     Route: 065
  100. DILTIAZEM HYDROCHLORIDE [Suspect]
     Active Substance: DILTIAZEM HYDROCHLORIDE
     Dosage: UNK
     Route: 065
  101. DILTIAZEM HYDROCHLORIDE [Suspect]
     Active Substance: DILTIAZEM HYDROCHLORIDE
     Dosage: UNK (MODIFIED-RELEASE CAPSULE, HARD
     Route: 065
  102. DILTIAZEM HYDROCHLORIDE [Suspect]
     Active Substance: DILTIAZEM HYDROCHLORIDE
     Dosage: UNK (MODIFIED-RELEASE CAPSULE, HARD
     Route: 065
  103. DILTIAZEM HYDROCHLORIDE [Suspect]
     Active Substance: DILTIAZEM HYDROCHLORIDE
     Dosage: UNK(CAPSULE SUSTAINED RELEASE)
     Route: 065
  104. FUROSEMIDE [Suspect]
     Active Substance: FUROSEMIDE
     Indication: Angina pectoris
     Dosage: 40 MG, QD
     Route: 065
  105. FUROSEMIDE [Suspect]
     Active Substance: FUROSEMIDE
     Indication: Chest pain
     Dosage: 40 MG, QD
     Route: 065
  106. FUROSEMIDE [Suspect]
     Active Substance: FUROSEMIDE
     Indication: Coronary artery disease
     Dosage: 40 MG, QD
     Route: 065
  107. FUROSEMIDE [Suspect]
     Active Substance: FUROSEMIDE
     Indication: Oedema
     Dosage: 40 MG, QD
     Route: 065
  108. FUROSEMIDE [Suspect]
     Active Substance: FUROSEMIDE
     Dosage: 40 MG, QD
     Route: 065
  109. FUROSEMIDE [Suspect]
     Active Substance: FUROSEMIDE
     Dosage: 40 MG, Q8H
     Route: 065
  110. FUROSEMIDE [Suspect]
     Active Substance: FUROSEMIDE
     Dosage: UNK
     Route: 065
  111. FUROSEMIDE [Suspect]
     Active Substance: FUROSEMIDE
     Dosage: UNK
     Route: 065
  112. GALANTAMINE HYDROBROMIDE [Suspect]
     Active Substance: GALANTAMINE HYDROBROMIDE
     Dosage: 16 MG, QD
     Route: 065
  113. GALANTAMINE HYDROBROMIDE [Suspect]
     Active Substance: GALANTAMINE HYDROBROMIDE
     Indication: Pain
     Dosage: 16 MG, QD, (MODIFIED-RELEASE CAPSULE, HARD)
     Route: 065
  114. GALANTAMINE HYDROBROMIDE [Suspect]
     Active Substance: GALANTAMINE HYDROBROMIDE
     Dosage: UNK (PROLONGED-RELEASE CAPSULE)
     Route: 065
  115. GALANTAMINE HYDROBROMIDE [Suspect]
     Active Substance: GALANTAMINE HYDROBROMIDE
     Indication: Dementia
     Dosage: UNK, (MODIFIED-RELEASE CAPSULE, HARD)
     Route: 065
  116. LEVOFLOXACIN [Suspect]
     Active Substance: LEVOFLOXACIN
     Indication: Urinary tract infection
     Dosage: 250 MG, QD
     Route: 065
  117. LEVOFLOXACIN [Suspect]
     Active Substance: LEVOFLOXACIN
     Dosage: 250 MG, QD
     Route: 065
  118. LEVOFLOXACIN [Suspect]
     Active Substance: LEVOFLOXACIN
     Dosage: UNK
     Route: 065
  119. LEVOFLOXACIN [Suspect]
     Active Substance: LEVOFLOXACIN
     Dosage: UNK
     Route: 065
  120. LEVOFLOXACIN [Suspect]
     Active Substance: LEVOFLOXACIN
     Dosage: UNK
     Route: 065
  121. LEVOFLOXACIN [Suspect]
     Active Substance: LEVOFLOXACIN
     Dosage: UNK
     Route: 065
  122. MORPHINE SULFATE [Suspect]
     Active Substance: MORPHINE SULFATE
     Dosage: 10 MG, QD
     Route: 030
  123. MORPHINE SULFATE [Suspect]
     Active Substance: MORPHINE SULFATE
     Dosage: 10 MG, QD
     Route: 030
  124. MORPHINE SULFATE [Suspect]
     Active Substance: MORPHINE SULFATE
     Dosage: 10 MG, QD
     Route: 030
  125. MORPHINE SULFATE [Suspect]
     Active Substance: MORPHINE SULFATE
     Indication: Fibromyalgia
     Dosage: 20 MG, QD
     Route: 030
  126. MORPHINE SULFATE [Suspect]
     Active Substance: MORPHINE SULFATE
     Indication: Pain
     Dosage: 20 MG, QD
     Route: 030
  127. MORPHINE SULFATE [Suspect]
     Active Substance: MORPHINE SULFATE
     Dosage: 20 MG, QD
     Route: 030
  128. MORPHINE SULFATE [Suspect]
     Active Substance: MORPHINE SULFATE
     Dosage: UNK
     Route: 065
  129. NITROGLYCERIN [Suspect]
     Active Substance: NITROGLYCERIN
     Dosage: 0.4 MG, Q24H
     Route: 065
  130. NITROGLYCERIN [Suspect]
     Active Substance: NITROGLYCERIN
     Indication: Angina pectoris
     Dosage: 0.4 MG
     Route: 065
  131. NITROGLYCERIN [Suspect]
     Active Substance: NITROGLYCERIN
     Dosage: 0.4 MG
     Route: 065
  132. NITROGLYCERIN [Suspect]
     Active Substance: NITROGLYCERIN
     Dosage: 0.4 MG
     Route: 065
  133. NITROGLYCERIN [Suspect]
     Active Substance: NITROGLYCERIN
     Dosage: 0.6 MG, Q24H
     Route: 065
  134. NITROGLYCERIN [Suspect]
     Active Substance: NITROGLYCERIN
     Dosage: 1 DOSAGE FORM, Q24H
     Route: 065
  135. NITROGLYCERIN [Suspect]
     Active Substance: NITROGLYCERIN
     Dosage: 6 MG, Q24H
     Route: 061
  136. NITROGLYCERIN [Suspect]
     Active Substance: NITROGLYCERIN
     Dosage: 6 MG, Q24H
     Route: 061
  137. NITROGLYCERIN [Suspect]
     Active Substance: NITROGLYCERIN
     Indication: Chest pain
     Dosage: UNK, QD (1 EVERY 24 HOURS))
     Route: 065
  138. NITROGLYCERIN [Suspect]
     Active Substance: NITROGLYCERIN
     Indication: Coronary artery disease
     Dosage: UNK
     Route: 065
  139. NITROGLYCERIN [Suspect]
     Active Substance: NITROGLYCERIN
     Dosage: UNK
     Route: 065
  140. NITROGLYCERIN [Suspect]
     Active Substance: NITROGLYCERIN
     Dosage: UNK
     Route: 065
  141. ROSUVASTATIN CALCIUM [Suspect]
     Active Substance: ROSUVASTATIN CALCIUM
     Dosage: 10 MG, QD
     Route: 048
  142. ROSUVASTATIN CALCIUM [Suspect]
     Active Substance: ROSUVASTATIN CALCIUM
     Dosage: 10 MG (1 EVERY 12 HOURS)
     Route: 048
  143. ROSUVASTATIN CALCIUM [Suspect]
     Active Substance: ROSUVASTATIN CALCIUM
     Dosage: 20 MG, QD
     Route: 048
  144. ROSUVASTATIN CALCIUM [Suspect]
     Active Substance: ROSUVASTATIN CALCIUM
     Dosage: 20 MG, QD
     Route: 048
  145. ROSUVASTATIN CALCIUM [Suspect]
     Active Substance: ROSUVASTATIN CALCIUM
     Dosage: 20 MG, QD
     Route: 048
  146. ROSUVASTATIN CALCIUM [Suspect]
     Active Substance: ROSUVASTATIN CALCIUM
     Dosage: 20 MG, QD
     Route: 048
  147. ROSUVASTATIN CALCIUM [Suspect]
     Active Substance: ROSUVASTATIN CALCIUM
     Dosage: 20 MG, QD
     Route: 048
  148. ROSUVASTATIN CALCIUM [Suspect]
     Active Substance: ROSUVASTATIN CALCIUM
     Dosage: 20 MG, QD
     Route: 048
  149. ROSUVASTATIN CALCIUM [Suspect]
     Active Substance: ROSUVASTATIN CALCIUM
     Indication: Chronic obstructive pulmonary disease
     Dosage: 20 MG (1 EVERY 12 HOURS)
     Route: 048
  150. ROSUVASTATIN CALCIUM [Suspect]
     Active Substance: ROSUVASTATIN CALCIUM
     Indication: Cerebrovascular accident
     Dosage: 20 MG, BID
     Route: 048
  151. ROSUVASTATIN CALCIUM [Suspect]
     Active Substance: ROSUVASTATIN CALCIUM
     Indication: Angina pectoris
     Dosage: 20 MG, Q12H
     Route: 048
  152. ROSUVASTATIN CALCIUM [Suspect]
     Active Substance: ROSUVASTATIN CALCIUM
     Dosage: 20 MG, Q12H
     Route: 048
  153. ROSUVASTATIN CALCIUM [Suspect]
     Active Substance: ROSUVASTATIN CALCIUM
     Dosage: 20 MG, Q12H
     Route: 048
  154. ROSUVASTATIN CALCIUM [Suspect]
     Active Substance: ROSUVASTATIN CALCIUM
     Dosage: 20 MG, Q12H
     Route: 048
  155. ROSUVASTATIN CALCIUM [Suspect]
     Active Substance: ROSUVASTATIN CALCIUM
     Dosage: 20 MG, Q12H
     Route: 048
  156. ROSUVASTATIN CALCIUM [Suspect]
     Active Substance: ROSUVASTATIN CALCIUM
     Dosage: 20 MG, Q12H
     Route: 048
  157. ROSUVASTATIN CALCIUM [Suspect]
     Active Substance: ROSUVASTATIN CALCIUM
     Dosage: 20 MG, Q12H
     Route: 048
  158. ROSUVASTATIN CALCIUM [Suspect]
     Active Substance: ROSUVASTATIN CALCIUM
     Dosage: 20 MG, Q12H
     Route: 048
  159. ROSUVASTATIN CALCIUM [Suspect]
     Active Substance: ROSUVASTATIN CALCIUM
     Dosage: 20 MG, Q12H
     Route: 048
  160. ROSUVASTATIN CALCIUM [Suspect]
     Active Substance: ROSUVASTATIN CALCIUM
     Dosage: 20 MG, Q12H
     Route: 048
  161. ROSUVASTATIN CALCIUM [Suspect]
     Active Substance: ROSUVASTATIN CALCIUM
     Dosage: 20 MG, Q12H
     Route: 048
  162. ROSUVASTATIN CALCIUM [Suspect]
     Active Substance: ROSUVASTATIN CALCIUM
     Dosage: 20 MG, Q12H
     Route: 048
  163. ROSUVASTATIN CALCIUM [Suspect]
     Active Substance: ROSUVASTATIN CALCIUM
     Dosage: 20 MG, Q12H
     Route: 048
  164. ROSUVASTATIN CALCIUM [Suspect]
     Active Substance: ROSUVASTATIN CALCIUM
     Dosage: 20 MG
     Route: 065
  165. ROSUVASTATIN CALCIUM [Suspect]
     Active Substance: ROSUVASTATIN CALCIUM
     Indication: Coronary artery disease
     Dosage: 200 MG, Q12H
     Route: 065
  166. ROSUVASTATIN CALCIUM [Suspect]
     Active Substance: ROSUVASTATIN CALCIUM
     Dosage: 200 MG, Q12H
     Route: 065
  167. ROSUVASTATIN CALCIUM [Suspect]
     Active Substance: ROSUVASTATIN CALCIUM
     Dosage: 200 MG, Q12H
     Route: 065
  168. ROSUVASTATIN CALCIUM [Suspect]
     Active Substance: ROSUVASTATIN CALCIUM
     Dosage: 200 MG, Q12H
     Route: 065
  169. ROSUVASTATIN CALCIUM [Suspect]
     Active Substance: ROSUVASTATIN CALCIUM
     Dosage: 200 MG, Q12H
     Route: 065
  170. ROSUVASTATIN CALCIUM [Suspect]
     Active Substance: ROSUVASTATIN CALCIUM
     Dosage: 200 MG, Q12H
     Route: 065
  171. ROSUVASTATIN CALCIUM [Suspect]
     Active Substance: ROSUVASTATIN CALCIUM
     Dosage: 200 MG, Q6H
     Route: 065
  172. ROSUVASTATIN CALCIUM [Suspect]
     Active Substance: ROSUVASTATIN CALCIUM
     Dosage: 200 MG, Q6H
     Route: 065
  173. ROSUVASTATIN CALCIUM [Suspect]
     Active Substance: ROSUVASTATIN CALCIUM
     Dosage: 200 MG, Q6H
     Route: 065
  174. ROSUVASTATIN CALCIUM [Suspect]
     Active Substance: ROSUVASTATIN CALCIUM
     Dosage: 200 MG, Q6H
     Route: 065
  175. ROSUVASTATIN CALCIUM [Suspect]
     Active Substance: ROSUVASTATIN CALCIUM
     Dosage: 200 MG, Q6H
     Route: 065
  176. ROSUVASTATIN CALCIUM [Suspect]
     Active Substance: ROSUVASTATIN CALCIUM
     Dosage: 200 MG, Q6H
     Route: 065
  177. ROSUVASTATIN CALCIUM [Suspect]
     Active Substance: ROSUVASTATIN CALCIUM
     Dosage: 200 MG, Q6H
     Route: 065
  178. ROSUVASTATIN CALCIUM [Suspect]
     Active Substance: ROSUVASTATIN CALCIUM
     Dosage: 200 MG, Q6H
     Route: 065
  179. ROSUVASTATIN CALCIUM [Suspect]
     Active Substance: ROSUVASTATIN CALCIUM
     Indication: Hypertension
     Dosage: 40 MG, QD
     Route: 048
  180. ROSUVASTATIN CALCIUM [Suspect]
     Active Substance: ROSUVASTATIN CALCIUM
     Dosage: 40 MG, QD
     Route: 048
  181. ROSUVASTATIN CALCIUM [Suspect]
     Active Substance: ROSUVASTATIN CALCIUM
     Dosage: 40 MG, QD
     Route: 048
  182. ROSUVASTATIN CALCIUM [Suspect]
     Active Substance: ROSUVASTATIN CALCIUM
     Dosage: 40 MG, QD
     Route: 048
  183. ROSUVASTATIN CALCIUM [Suspect]
     Active Substance: ROSUVASTATIN CALCIUM
     Dosage: 40 MG, QD
     Route: 048
  184. ROSUVASTATIN CALCIUM [Suspect]
     Active Substance: ROSUVASTATIN CALCIUM
     Dosage: 40 MG, QD
     Route: 048
  185. ROSUVASTATIN CALCIUM [Suspect]
     Active Substance: ROSUVASTATIN CALCIUM
     Dosage: UNK
     Route: 048
  186. ROSUVASTATIN CALCIUM [Suspect]
     Active Substance: ROSUVASTATIN CALCIUM
     Indication: Chest pain
     Dosage: UNK
     Route: 058
  187. ROSUVASTATIN CALCIUM [Suspect]
     Active Substance: ROSUVASTATIN CALCIUM
     Dosage: UNK
     Route: 059
  188. ASPIRIN [Concomitant]
     Active Substance: ASPIRIN
     Indication: Hypertension
     Dosage: UNK
     Route: 065
  189. ASPIRIN [Concomitant]
     Active Substance: ASPIRIN
     Indication: Angina pectoris
  190. ASPIRIN [Concomitant]
     Active Substance: ASPIRIN
     Indication: Coronary artery disease
  191. ASCORBIC ACID [Concomitant]
     Active Substance: ASCORBIC ACID
     Indication: Product used for unknown indication
     Dosage: UNK
     Route: 065
  192. ASPIRIN [Concomitant]
     Active Substance: ASPIRIN
     Dosage: UNK
     Route: 048
  193. ASPIRIN [Concomitant]
     Active Substance: ASPIRIN
     Indication: Product used for unknown indication
     Dosage: UNK
     Route: 065
  194. CALCIUM ASCORBATE [Concomitant]
     Active Substance: CALCIUM ASCORBATE
     Indication: Product used for unknown indication
     Dosage: UNK
     Route: 065
  195. FRUCTOSE [Concomitant]
     Active Substance: FRUCTOSE
     Indication: Product used for unknown indication
     Dosage: UNK
     Route: 065
  196. HERBALS\PLANTAGO OVATA LEAF [Concomitant]
     Active Substance: HERBALS\PLANTAGO OVATA LEAF
     Indication: Product used for unknown indication
     Dosage: UNK
     Route: 065
  197. CALCIUM POLYCARBOPHIL [Concomitant]
     Active Substance: CALCIUM POLYCARBOPHIL
     Indication: Product used for unknown indication
     Dosage: UNK
     Route: 065
  198. VITAMIN C [Concomitant]
     Active Substance: ASCORBIC ACID
     Indication: Product used for unknown indication
     Dosage: UNK
     Route: 065
  199. ZINC [Concomitant]
     Active Substance: ZINC
     Indication: Product used for unknown indication
     Dosage: UNK
     Route: 065
  200. AMITRIPTYLINE HYDROCHLORIDE [Interacting]
     Active Substance: AMITRIPTYLINE HYDROCHLORIDE
     Indication: Dementia
     Dosage: 25 MG, 1 EVERY 1 DAY
     Route: 065
  201. AMITRIPTYLINE HYDROCHLORIDE [Interacting]
     Active Substance: AMITRIPTYLINE HYDROCHLORIDE
     Indication: Oedema
     Dosage: 50 MG, QD
     Route: 065
  202. AMITRIPTYLINE HYDROCHLORIDE [Interacting]
     Active Substance: AMITRIPTYLINE HYDROCHLORIDE
     Indication: Thyroid disorder
     Dosage: 50 MG, QD
     Route: 065
  203. AMITRIPTYLINE HYDROCHLORIDE [Interacting]
     Active Substance: AMITRIPTYLINE HYDROCHLORIDE
     Indication: Hypertension
     Dosage: 50 MG
     Route: 065
  204. AMITRIPTYLINE HYDROCHLORIDE [Interacting]
     Active Substance: AMITRIPTYLINE HYDROCHLORIDE
     Indication: Angina pectoris
     Dosage: 50 MG, 1 EVERY 1 DAY
     Route: 065
  205. AMITRIPTYLINE HYDROCHLORIDE [Interacting]
     Active Substance: AMITRIPTYLINE HYDROCHLORIDE
     Indication: Arthritis
     Dosage: 50 MG, 1 EVERY 1 DAY
     Route: 065
  206. AMITRIPTYLINE HYDROCHLORIDE [Interacting]
     Active Substance: AMITRIPTYLINE HYDROCHLORIDE
     Indication: Chest pain
     Dosage: 50 MG, 1 EVERY 1 DAY
     Route: 065
  207. AMITRIPTYLINE HYDROCHLORIDE [Interacting]
     Active Substance: AMITRIPTYLINE HYDROCHLORIDE
     Indication: Constipation
     Dosage: 50 MG, 1 EVERY 1 DAY
     Route: 065
  208. AMITRIPTYLINE HYDROCHLORIDE [Interacting]
     Active Substance: AMITRIPTYLINE HYDROCHLORIDE
     Indication: Coronary artery disease
     Dosage: 50 MG, 1 EVERY 1 DAY
     Route: 065
  209. AMITRIPTYLINE HYDROCHLORIDE [Interacting]
     Active Substance: AMITRIPTYLINE HYDROCHLORIDE
     Dosage: 50 MG, 1 EVERY 1 DAY
     Route: 065
  210. AMITRIPTYLINE HYDROCHLORIDE [Interacting]
     Active Substance: AMITRIPTYLINE HYDROCHLORIDE
     Dosage: 50 MG, 1 EVERY 1 DAY
     Route: 065
  211. AMITRIPTYLINE HYDROCHLORIDE [Interacting]
     Active Substance: AMITRIPTYLINE HYDROCHLORIDE
     Dosage: 50 MG, 1 EVERY 1 DAY
     Route: 065
  212. AMITRIPTYLINE HYDROCHLORIDE [Interacting]
     Active Substance: AMITRIPTYLINE HYDROCHLORIDE
     Dosage: 50 MG, 1 EVERY 1 DAY
     Route: 065
  213. AMITRIPTYLINE HYDROCHLORIDE [Interacting]
     Active Substance: AMITRIPTYLINE HYDROCHLORIDE
     Dosage: 50 MG, 1 EVERY 1 DAY
     Route: 065
  214. AMITRIPTYLINE HYDROCHLORIDE [Interacting]
     Active Substance: AMITRIPTYLINE HYDROCHLORIDE
     Dosage: 50 MG, 1 EVERY 1 DAY
     Route: 065
  215. AMITRIPTYLINE HYDROCHLORIDE [Interacting]
     Active Substance: AMITRIPTYLINE HYDROCHLORIDE
     Dosage: 50 MG, 1 EVERY 1 DAY
     Route: 065
  216. AMITRIPTYLINE HYDROCHLORIDE [Interacting]
     Active Substance: AMITRIPTYLINE HYDROCHLORIDE
     Dosage: 50 MG, 1 EVERY 1 DAY
     Route: 065
  217. AMITRIPTYLINE HYDROCHLORIDE [Interacting]
     Active Substance: AMITRIPTYLINE HYDROCHLORIDE
     Dosage: 50 MG, 1 EVERY 1 DAY
     Route: 065
  218. AMITRIPTYLINE HYDROCHLORIDE [Interacting]
     Active Substance: AMITRIPTYLINE HYDROCHLORIDE
     Dosage: 50 MG, 1 EVERY 1 DAY
     Route: 065
  219. AMITRIPTYLINE HYDROCHLORIDE [Interacting]
     Active Substance: AMITRIPTYLINE HYDROCHLORIDE
     Dosage: 50 MG, 1 EVERY 1 DAY
     Route: 065
  220. AMITRIPTYLINE HYDROCHLORIDE [Interacting]
     Active Substance: AMITRIPTYLINE HYDROCHLORIDE
     Indication: Insomnia
     Dosage: 75 MG, QD
     Route: 065
  221. AMITRIPTYLINE HYDROCHLORIDE [Interacting]
     Active Substance: AMITRIPTYLINE HYDROCHLORIDE
     Indication: Pain
     Dosage: 75 MG, QD
     Route: 065
  222. AMITRIPTYLINE HYDROCHLORIDE [Interacting]
     Active Substance: AMITRIPTYLINE HYDROCHLORIDE
     Indication: Prophylaxis
     Dosage: 75 MG, QD
     Route: 065
  223. AMITRIPTYLINE HYDROCHLORIDE [Interacting]
     Active Substance: AMITRIPTYLINE HYDROCHLORIDE
     Indication: Radioactive iodine therapy
     Dosage: 75 MG, QD
     Route: 065
  224. AMITRIPTYLINE HYDROCHLORIDE [Interacting]
     Active Substance: AMITRIPTYLINE HYDROCHLORIDE
     Indication: Fibromyalgia
     Dosage: 75 MG
     Route: 065
  225. AMITRIPTYLINE HYDROCHLORIDE [Interacting]
     Active Substance: AMITRIPTYLINE HYDROCHLORIDE
     Dosage: 75 MG, 1 EVERY 1 DAY
     Route: 065
  226. AMITRIPTYLINE HYDROCHLORIDE [Interacting]
     Active Substance: AMITRIPTYLINE HYDROCHLORIDE
     Dosage: 75 MG, 1 EVERY 1 DAY
     Route: 065
  227. AMITRIPTYLINE HYDROCHLORIDE [Interacting]
     Active Substance: AMITRIPTYLINE HYDROCHLORIDE
     Dosage: 75 MG, 1 EVERY 1 DAY
     Route: 065
  228. AMITRIPTYLINE HYDROCHLORIDE [Interacting]
     Active Substance: AMITRIPTYLINE HYDROCHLORIDE
     Dosage: 75 MG, 1 EVERY 1 DAY
     Route: 065
  229. AMITRIPTYLINE HYDROCHLORIDE [Interacting]
     Active Substance: AMITRIPTYLINE HYDROCHLORIDE
     Dosage: 75 MG, 1 EVERY 1 DAY
     Route: 065
  230. AMITRIPTYLINE HYDROCHLORIDE [Interacting]
     Active Substance: AMITRIPTYLINE HYDROCHLORIDE
     Dosage: 75 MG, 1 EVERY 1 DAY
     Route: 065
  231. AMITRIPTYLINE HYDROCHLORIDE [Interacting]
     Active Substance: AMITRIPTYLINE HYDROCHLORIDE
     Dosage: 75 MG, 1 EVERY 1 DAY
     Route: 065
  232. AMITRIPTYLINE HYDROCHLORIDE [Interacting]
     Active Substance: AMITRIPTYLINE HYDROCHLORIDE
     Dosage: 75 MG, 1 EVERY 1 DAY
     Route: 065
  233. AMITRIPTYLINE HYDROCHLORIDE [Interacting]
     Active Substance: AMITRIPTYLINE HYDROCHLORIDE
     Dosage: 75 MG, 1 EVERY 1 DAY
     Route: 065
  234. AMITRIPTYLINE HYDROCHLORIDE [Interacting]
     Active Substance: AMITRIPTYLINE HYDROCHLORIDE
     Dosage: 75 MG, 1 EVERY 1 DAY
     Route: 065
  235. AMITRIPTYLINE HYDROCHLORIDE [Interacting]
     Active Substance: AMITRIPTYLINE HYDROCHLORIDE
     Dosage: 75 MG, 1 EVERY 1 DAY
     Route: 065
  236. AMITRIPTYLINE HYDROCHLORIDE [Interacting]
     Active Substance: AMITRIPTYLINE HYDROCHLORIDE
     Dosage: 75 MG, 1 EVERY 1 DAY
     Route: 065
  237. AMITRIPTYLINE HYDROCHLORIDE [Interacting]
     Active Substance: AMITRIPTYLINE HYDROCHLORIDE
     Dosage: 75 MG, 1 EVERY 1 DAY
     Route: 065
  238. AMITRIPTYLINE HYDROCHLORIDE [Interacting]
     Active Substance: AMITRIPTYLINE HYDROCHLORIDE
     Dosage: 75 MG, 1 EVERY 1 DAY
     Route: 065
  239. AMITRIPTYLINE HYDROCHLORIDE [Interacting]
     Active Substance: AMITRIPTYLINE HYDROCHLORIDE
     Dosage: 75 MG, 1 EVERY 1 DAY
     Route: 065
  240. AMITRIPTYLINE HYDROCHLORIDE [Interacting]
     Active Substance: AMITRIPTYLINE HYDROCHLORIDE
     Dosage: 75 MG, 1 EVERY 1 DAY
     Route: 065
  241. AMITRIPTYLINE HYDROCHLORIDE [Interacting]
     Active Substance: AMITRIPTYLINE HYDROCHLORIDE
     Dosage: 75 MG, 1 EVERY 1 DAY
     Route: 065
  242. AMITRIPTYLINE HYDROCHLORIDE [Interacting]
     Active Substance: AMITRIPTYLINE HYDROCHLORIDE
     Dosage: 75 MG, 1 EVERY 1 DAY
     Route: 065
  243. AMITRIPTYLINE HYDROCHLORIDE [Interacting]
     Active Substance: AMITRIPTYLINE HYDROCHLORIDE
     Indication: Duodenal ulcer
     Dosage: UNK
     Route: 065
  244. AMITRIPTYLINE HYDROCHLORIDE [Interacting]
     Active Substance: AMITRIPTYLINE HYDROCHLORIDE
     Dosage: UNK
     Route: 065
  245. AMITRIPTYLINE HYDROCHLORIDE [Interacting]
     Active Substance: AMITRIPTYLINE HYDROCHLORIDE
     Dosage: UNK
     Route: 065
  246. AMITRIPTYLINE HYDROCHLORIDE [Interacting]
     Active Substance: AMITRIPTYLINE HYDROCHLORIDE
     Dosage: UNK
     Route: 065
  247. AMITRIPTYLINE HYDROCHLORIDE [Interacting]
     Active Substance: AMITRIPTYLINE HYDROCHLORIDE
     Dosage: UNK
     Route: 065
  248. AMITRIPTYLINE HYDROCHLORIDE [Interacting]
     Active Substance: AMITRIPTYLINE HYDROCHLORIDE
     Dosage: UNK
     Route: 065
  249. AMITRIPTYLINE HYDROCHLORIDE [Interacting]
     Active Substance: AMITRIPTYLINE HYDROCHLORIDE
     Dosage: UNK
     Route: 065
  250. AMITRIPTYLINE [Interacting]
     Active Substance: AMITRIPTYLINE
     Indication: Insomnia
     Dosage: 75 MG
     Route: 065
  251. AMITRIPTYLINE [Interacting]
     Active Substance: AMITRIPTYLINE
     Dosage: UNK
     Route: 065
  252. DILTIAZEM HYDROCHLORIDE [Interacting]
     Active Substance: DILTIAZEM HYDROCHLORIDE
     Indication: Coronary artery disease
     Dosage: 360 MG, QD
     Route: 065
  253. DILTIAZEM HYDROCHLORIDE [Interacting]
     Active Substance: DILTIAZEM HYDROCHLORIDE
     Dosage: 360 MG, QD
     Route: 065
  254. DILTIAZEM HYDROCHLORIDE [Interacting]
     Active Substance: DILTIAZEM HYDROCHLORIDE
     Dosage: 360 MG, QD
     Route: 065
  255. DILTIAZEM HYDROCHLORIDE [Interacting]
     Active Substance: DILTIAZEM HYDROCHLORIDE
     Dosage: 360 MG, QD
     Route: 065
  256. DILTIAZEM HYDROCHLORIDE [Interacting]
     Active Substance: DILTIAZEM HYDROCHLORIDE
     Indication: Angina pectoris
     Dosage: 500 MG, QD
     Route: 065
  257. DILTIAZEM HYDROCHLORIDE [Interacting]
     Active Substance: DILTIAZEM HYDROCHLORIDE
     Indication: Hypertension
     Dosage: 500 MG, QD
     Route: 065
  258. DILTIAZEM HYDROCHLORIDE [Interacting]
     Active Substance: DILTIAZEM HYDROCHLORIDE
     Dosage: 500 MG, QD
     Route: 065
  259. DILTIAZEM HYDROCHLORIDE [Interacting]
     Active Substance: DILTIAZEM HYDROCHLORIDE
     Dosage: 500 MG, QD
     Route: 065
  260. DILTIAZEM HYDROCHLORIDE [Interacting]
     Active Substance: DILTIAZEM HYDROCHLORIDE
     Indication: Chest pain
     Dosage: UNK
     Route: 065
  261. DILTIAZEM HYDROCHLORIDE [Interacting]
     Active Substance: DILTIAZEM HYDROCHLORIDE
     Dosage: UNK
     Route: 065
  262. DILTIAZEM HYDROCHLORIDE [Interacting]
     Active Substance: DILTIAZEM HYDROCHLORIDE
     Dosage: UNK
     Route: 065
  263. DILTIAZEM HYDROCHLORIDE [Interacting]
     Active Substance: DILTIAZEM HYDROCHLORIDE
     Dosage: UNK
     Route: 065
  264. CYCLOBENZAPRINE [Interacting]
     Active Substance: CYCLOBENZAPRINE
     Indication: Fibromyalgia
     Dosage: 5 MG, Q8H
     Route: 065
  265. CYCLOBENZAPRINE [Interacting]
     Active Substance: CYCLOBENZAPRINE
     Dosage: UNK
     Route: 065
  266. BISACODYL [Interacting]
     Active Substance: BISACODYL
     Dosage: 1 DOSAGE FORM, QD
     Route: 065
  267. BISACODYL [Interacting]
     Active Substance: BISACODYL
     Dosage: 2 DOSAGE FORM, QD
     Route: 065
  268. BISACODYL [Interacting]
     Active Substance: BISACODYL
     Indication: Constipation
     Dosage: UNK
     Route: 065
  269. CAFFEINE [Interacting]
     Active Substance: CAFFEINE
     Indication: Product used for unknown indication
     Dosage: UNK
     Route: 065
  270. CALCIUM CARBONATE [Interacting]
     Active Substance: CALCIUM CARBONATE
     Indication: Product used for unknown indication
     Dosage: UNK
     Route: 065
  271. CRANBERRY [Interacting]
     Active Substance: CRANBERRY
     Dosage: 500 MG, Q8H
     Route: 065
  272. CRANBERRY [Interacting]
     Active Substance: CRANBERRY
     Indication: Bladder disorder
     Dosage: UNK
     Route: 065
  273. DULCOLAX (BISACODYL) [Interacting]
     Active Substance: BISACODYL
     Dosage: 2 DOSAGE FORM, QD
     Route: 065
  274. DULCOLAX (BISACODYL) [Interacting]
     Active Substance: BISACODYL
     Indication: Constipation
     Dosage: UNK
     Route: 065
  275. NITROGLYCERIN [Interacting]
     Active Substance: NITROGLYCERIN
     Dosage: 0.4 MG, QD
     Route: 065
  276. NITROGLYCERIN [Interacting]
     Active Substance: NITROGLYCERIN
     Dosage: 0.4 MG, QD
     Route: 065
  277. NITROGLYCERIN [Interacting]
     Active Substance: NITROGLYCERIN
     Indication: Coronary artery disease
     Dosage: 0.4 MG, QD (1 EVERY 24 HOURS)
     Route: 065
  278. NITROGLYCERIN [Interacting]
     Active Substance: NITROGLYCERIN
     Dosage: 0.4 MG, QD (1 EVERY 24 HOURS)
     Route: 065
  279. NITROGLYCERIN [Interacting]
     Active Substance: NITROGLYCERIN
     Dosage: 0.4 MG
     Route: 065
  280. NITROGLYCERIN [Interacting]
     Active Substance: NITROGLYCERIN
     Indication: Angina pectoris
     Dosage: 0.6 MG, QD
     Route: 061
  281. NITROGLYCERIN [Interacting]
     Active Substance: NITROGLYCERIN
     Dosage: 0.6 MG, QD
     Route: 061
  282. NITROGLYCERIN [Interacting]
     Active Substance: NITROGLYCERIN
     Indication: Chest pain
     Dosage: 0.6 MG, QD (1 EVERY 24 HOURS)
     Route: 061
  283. NITROGLYCERIN [Interacting]
     Active Substance: NITROGLYCERIN
     Indication: Hypertension
     Dosage: 0.6 MG, QD (1 EVERY 24 HOURS)
     Route: 061
  284. NITROGLYCERIN [Interacting]
     Active Substance: NITROGLYCERIN
     Dosage: 1 DOSAGE FORM, QD
     Route: 065
  285. NITROGLYCERIN [Interacting]
     Active Substance: NITROGLYCERIN
     Dosage: 1 DOSAGE FORM, QD
     Route: 065
  286. NITROGLYCERIN [Interacting]
     Active Substance: NITROGLYCERIN
     Dosage: 20 MG, QD
     Route: 065
  287. NITROGLYCERIN [Interacting]
     Active Substance: NITROGLYCERIN
     Dosage: 20 MG, QD
     Route: 065
  288. NITROGLYCERIN [Interacting]
     Active Substance: NITROGLYCERIN
     Dosage: 20 MG, QD (1 EVERY 24 HOURS)
     Route: 065
  289. NITROGLYCERIN [Interacting]
     Active Substance: NITROGLYCERIN
     Dosage: 6 MG, QD
     Route: 065
  290. NITROGLYCERIN [Interacting]
     Active Substance: NITROGLYCERIN
     Dosage: 6 MG, QD
     Route: 065
  291. NITROGLYCERIN [Interacting]
     Active Substance: NITROGLYCERIN
     Dosage: UNK
     Route: 065
  292. LEVOTHYROXINE SODIUM [Interacting]
     Active Substance: LEVOTHYROXINE SODIUM
     Dosage: 0.088 MG, QD
     Route: 048
  293. LEVOTHYROXINE SODIUM [Interacting]
     Active Substance: LEVOTHYROXINE SODIUM
     Dosage: 0.088 MG, QD
     Route: 048
  294. LEVOTHYROXINE SODIUM [Interacting]
     Active Substance: LEVOTHYROXINE SODIUM
     Indication: Product used for unknown indication
     Dosage: 0.88 MG, QD
     Route: 048
  295. LEVOTHYROXINE SODIUM [Interacting]
     Active Substance: LEVOTHYROXINE SODIUM
     Dosage: 0.88 MG, QD
     Route: 048
  296. LEVOTHYROXINE SODIUM [Interacting]
     Active Substance: LEVOTHYROXINE SODIUM
     Dosage: 250 MG, QD
     Route: 065
  297. LEVOTHYROXINE SODIUM [Interacting]
     Active Substance: LEVOTHYROXINE SODIUM
     Dosage: 250 MG, QD
     Route: 065
  298. LEVOTHYROXINE SODIUM [Interacting]
     Active Substance: LEVOTHYROXINE SODIUM
     Dosage: 250 MG, QD
     Route: 065
  299. LEVOTHYROXINE SODIUM [Interacting]
     Active Substance: LEVOTHYROXINE SODIUM
     Dosage: 250 MG, QD
     Route: 065
  300. LEVOTHYROXINE SODIUM [Interacting]
     Active Substance: LEVOTHYROXINE SODIUM
     Dosage: 250 MG, QD
     Route: 065
  301. LEVOTHYROXINE SODIUM [Interacting]
     Active Substance: LEVOTHYROXINE SODIUM
     Dosage: 622 MG, QD
     Route: 065
  302. LEVOTHYROXINE SODIUM [Interacting]
     Active Substance: LEVOTHYROXINE SODIUM
     Dosage: 622 MG, QD
     Route: 065
  303. LEVOTHYROXINE SODIUM [Interacting]
     Active Substance: LEVOTHYROXINE SODIUM
     Dosage: 622 MG, QD
     Route: 065
  304. LEVOTHYROXINE SODIUM [Interacting]
     Active Substance: LEVOTHYROXINE SODIUM
     Dosage: 622 MG, QD
     Route: 065
  305. LEVOTHYROXINE SODIUM [Interacting]
     Active Substance: LEVOTHYROXINE SODIUM
     Dosage: UNK
     Route: 065
  306. LEVOTHYROXINE SODIUM [Interacting]
     Active Substance: LEVOTHYROXINE SODIUM
     Dosage: UNK
     Route: 065
  307. LACTULOSE [Interacting]
     Active Substance: LACTULOSE
     Indication: Urinary tract infection
     Dosage: 15 MG, QD
     Route: 048
  308. LACTULOSE [Interacting]
     Active Substance: LACTULOSE
     Dosage: 15 MG, QD
     Route: 048
  309. LACTULOSE [Interacting]
     Active Substance: LACTULOSE
     Indication: Constipation
     Dosage: 15 ML, QD, LIQUID ORAL
     Route: 048
  310. LACTULOSE [Interacting]
     Active Substance: LACTULOSE
     Indication: Radioactive iodine therapy
     Dosage: 15 ML, QD, LIQUID ORAL
     Route: 048
  311. LACTULOSE [Interacting]
     Active Substance: LACTULOSE
     Indication: Thyroid disorder
     Dosage: 15 ML, QD, LIQUID ORAL
     Route: 048
  312. LACTULOSE [Interacting]
     Active Substance: LACTULOSE
     Dosage: 15 ML, LIQUID ORAL
     Route: 065
  313. LACTULOSE [Interacting]
     Active Substance: LACTULOSE
     Dosage: UNK, LIQUID ORAL
     Route: 048
  314. MAGNESIUM HYDROXIDE [Interacting]
     Active Substance: MAGNESIUM HYDROXIDE
     Dosage: 1 DOSAGE FORM (1 EVERY 12 HOURS)
     Route: 065
  315. MAGNESIUM HYDROXIDE [Interacting]
     Active Substance: MAGNESIUM HYDROXIDE
     Dosage: 1 DOSAGE FORM, Q12H
     Route: 065
  316. MAGNESIUM HYDROXIDE [Interacting]
     Active Substance: MAGNESIUM HYDROXIDE
     Dosage: 2 DOSAGE FORM, QD
     Route: 065
  317. MAGNESIUM HYDROXIDE [Interacting]
     Active Substance: MAGNESIUM HYDROXIDE
     Dosage: 2 DOSAGE FORM, QD
     Route: 065
  318. MAGNESIUM HYDROXIDE [Interacting]
     Active Substance: MAGNESIUM HYDROXIDE
     Dosage: 2 DOSAGE FORM, QD
     Route: 065
  319. MAGNESIUM HYDROXIDE [Interacting]
     Active Substance: MAGNESIUM HYDROXIDE
     Dosage: 2 DOSAGE FORM, QD
     Route: 065
  320. MAGNESIUM HYDROXIDE [Interacting]
     Active Substance: MAGNESIUM HYDROXIDE
     Dosage: 2 DOSAGE FORM, QD
     Route: 065
  321. MAGNESIUM HYDROXIDE [Interacting]
     Active Substance: MAGNESIUM HYDROXIDE
     Indication: Constipation
     Dosage: 622 MG, QD
     Route: 065
  322. MAGNESIUM HYDROXIDE [Interacting]
     Active Substance: MAGNESIUM HYDROXIDE
     Dosage: 622 MG, QD
     Route: 065
  323. MAGNESIUM HYDROXIDE [Interacting]
     Active Substance: MAGNESIUM HYDROXIDE
     Dosage: 622 MG,  (1 EVERY 12 HOURS)
     Route: 065
  324. MAGNESIUM HYDROXIDE [Interacting]
     Active Substance: MAGNESIUM HYDROXIDE
     Dosage: UNK, Q2W
     Route: 065
  325. MAGNESIUM HYDROXIDE [Interacting]
     Active Substance: MAGNESIUM HYDROXIDE
     Dosage: UNK
     Route: 065
  326. MAGNESIUM HYDROXIDE [Interacting]
     Active Substance: MAGNESIUM HYDROXIDE
     Dosage: UNK
     Route: 065
  327. MAGNESIUM HYDROXIDE [Interacting]
     Active Substance: MAGNESIUM HYDROXIDE
     Dosage: UNK
     Route: 065
  328. MAGNESIUM HYDROXIDE [Interacting]
     Active Substance: MAGNESIUM HYDROXIDE
     Dosage: UNK
     Route: 065
  329. MAGNESIUM HYDROXIDE [Interacting]
     Active Substance: MAGNESIUM HYDROXIDE
     Dosage: UNK
     Route: 065
  330. MAGNESIUM HYDROXIDE [Interacting]
     Active Substance: MAGNESIUM HYDROXIDE
     Dosage: UNK
     Route: 065
  331. MAGNESIUM HYDROXIDE [Interacting]
     Active Substance: MAGNESIUM HYDROXIDE
     Dosage: UNK(1 EVERY 12 HOURS)
     Route: 065
  332. OXCARBAZEPINE [Interacting]
     Active Substance: OXCARBAZEPINE
     Indication: Product used for unknown indication
     Dosage: UNK
     Route: 065
  333. OMEPRAZOLE MAGNESIUM [Interacting]
     Active Substance: OMEPRAZOLE MAGNESIUM
     Indication: Angina pectoris
     Dosage: 20 MG, QD
     Route: 048
  334. OMEPRAZOLE MAGNESIUM [Interacting]
     Active Substance: OMEPRAZOLE MAGNESIUM
     Indication: Chest pain
     Dosage: 20 MG, QD
     Route: 048
  335. OMEPRAZOLE MAGNESIUM [Interacting]
     Active Substance: OMEPRAZOLE MAGNESIUM
     Indication: Coronary artery disease
     Dosage: 20 MG, QD
     Route: 048
  336. OMEPRAZOLE MAGNESIUM [Interacting]
     Active Substance: OMEPRAZOLE MAGNESIUM
     Indication: Hypertension
     Dosage: 20 MG, QD
     Route: 048
  337. OMEPRAZOLE MAGNESIUM [Interacting]
     Active Substance: OMEPRAZOLE MAGNESIUM
     Indication: Duodenal ulcer
     Dosage: 20 MG, BID
     Route: 048
  338. OMEPRAZOLE MAGNESIUM [Interacting]
     Active Substance: OMEPRAZOLE MAGNESIUM
     Dosage: UNK
     Route: 048
  339. OMEPRAZOLE MAGNESIUM [Interacting]
     Active Substance: OMEPRAZOLE MAGNESIUM
     Dosage: UNK
     Route: 065
  340. PERSANTINE [Interacting]
     Active Substance: DIPYRIDAMOLE
     Indication: Cerebrovascular accident
     Dosage: UNK, QD
     Route: 065
  341. PERSANTINE [Interacting]
     Active Substance: DIPYRIDAMOLE
     Dosage: UNK
     Route: 065
  342. QUINAPRIL HYDROCHLORIDE [Interacting]
     Active Substance: QUINAPRIL HYDROCHLORIDE
     Indication: Coronary artery disease
     Dosage: 20 MG, QD
     Route: 065
  343. QUINAPRIL HYDROCHLORIDE [Interacting]
     Active Substance: QUINAPRIL HYDROCHLORIDE
     Dosage: 20 MG, QD
     Route: 065
  344. QUINAPRIL HYDROCHLORIDE [Interacting]
     Active Substance: QUINAPRIL HYDROCHLORIDE
     Dosage: 200 MG, Q12H
     Route: 065
  345. QUINAPRIL HYDROCHLORIDE [Interacting]
     Active Substance: QUINAPRIL HYDROCHLORIDE
     Dosage: 200 MG, Q12H
     Route: 065
  346. QUINAPRIL HYDROCHLORIDE [Interacting]
     Active Substance: QUINAPRIL HYDROCHLORIDE
     Dosage: 200 MG, Q12H
     Route: 065
  347. QUINAPRIL HYDROCHLORIDE [Interacting]
     Active Substance: QUINAPRIL HYDROCHLORIDE
     Dosage: 200 MG, Q12H
     Route: 065
  348. QUINAPRIL HYDROCHLORIDE [Interacting]
     Active Substance: QUINAPRIL HYDROCHLORIDE
     Dosage: 200 MG, Q12H
     Route: 065
  349. QUINAPRIL HYDROCHLORIDE [Interacting]
     Active Substance: QUINAPRIL HYDROCHLORIDE
     Dosage: 200 MG, Q12H
     Route: 065
  350. QUINAPRIL HYDROCHLORIDE [Interacting]
     Active Substance: QUINAPRIL HYDROCHLORIDE
     Dosage: 200 MG, Q12H
     Route: 065
  351. QUINAPRIL HYDROCHLORIDE [Interacting]
     Active Substance: QUINAPRIL HYDROCHLORIDE
     Dosage: 200 MG, Q12H
     Route: 065
  352. QUINAPRIL HYDROCHLORIDE [Interacting]
     Active Substance: QUINAPRIL HYDROCHLORIDE
     Dosage: 200 MG, Q12H
     Route: 065
  353. QUINAPRIL HYDROCHLORIDE [Interacting]
     Active Substance: QUINAPRIL HYDROCHLORIDE
     Dosage: 200 MG, Q12H
     Route: 065
  354. QUINAPRIL HYDROCHLORIDE [Interacting]
     Active Substance: QUINAPRIL HYDROCHLORIDE
     Indication: Angina pectoris
     Dosage: 20 MG, QID
     Route: 065
  355. QUINAPRIL HYDROCHLORIDE [Interacting]
     Active Substance: QUINAPRIL HYDROCHLORIDE
     Indication: Cerebrovascular accident
     Dosage: 20 MG, QID
     Route: 065
  356. QUINAPRIL HYDROCHLORIDE [Interacting]
     Active Substance: QUINAPRIL HYDROCHLORIDE
     Indication: Hypertension
     Dosage: 20 MG, QID
     Route: 065
  357. QUINAPRIL HYDROCHLORIDE [Interacting]
     Active Substance: QUINAPRIL HYDROCHLORIDE
     Indication: Chest pain
     Dosage: 40 MG, QD
     Route: 065
  358. QUINAPRIL HYDROCHLORIDE [Interacting]
     Active Substance: QUINAPRIL HYDROCHLORIDE
     Indication: Fibromyalgia
     Dosage: 40 MG, QD
     Route: 065
  359. QUINAPRIL HYDROCHLORIDE [Interacting]
     Active Substance: QUINAPRIL HYDROCHLORIDE
     Indication: Insomnia
     Dosage: 40 MG, QD
     Route: 065
  360. QUINAPRIL HYDROCHLORIDE [Interacting]
     Active Substance: QUINAPRIL HYDROCHLORIDE
     Indication: Seizure prophylaxis
     Dosage: 40 MG, QD
     Route: 065
  361. QUINAPRIL HYDROCHLORIDE [Interacting]
     Active Substance: QUINAPRIL HYDROCHLORIDE
     Dosage: 40 MG, QD
     Route: 065
  362. QUINAPRIL HYDROCHLORIDE [Interacting]
     Active Substance: QUINAPRIL HYDROCHLORIDE
     Dosage: 40 MG, QD
     Route: 065
  363. QUINAPRIL HYDROCHLORIDE [Interacting]
     Active Substance: QUINAPRIL HYDROCHLORIDE
     Dosage: 40 MG, QD
     Route: 065
  364. QUINAPRIL HYDROCHLORIDE [Interacting]
     Active Substance: QUINAPRIL HYDROCHLORIDE
     Dosage: 40 MG, QD
     Route: 065
  365. QUINAPRIL HYDROCHLORIDE [Interacting]
     Active Substance: QUINAPRIL HYDROCHLORIDE
     Dosage: 40 MG, QD
     Route: 065
  366. QUINAPRIL HYDROCHLORIDE [Interacting]
     Active Substance: QUINAPRIL HYDROCHLORIDE
     Dosage: 40 MG, QD
     Route: 065
  367. QUINAPRIL HYDROCHLORIDE [Interacting]
     Active Substance: QUINAPRIL HYDROCHLORIDE
     Dosage: 40 MG, QD
     Route: 065
  368. QUINAPRIL HYDROCHLORIDE [Interacting]
     Active Substance: QUINAPRIL HYDROCHLORIDE
     Dosage: 40 MG, QD
     Route: 065
  369. QUINAPRIL HYDROCHLORIDE [Interacting]
     Active Substance: QUINAPRIL HYDROCHLORIDE
     Dosage: 40 MG, QD
     Route: 065
  370. QUINAPRIL HYDROCHLORIDE [Interacting]
     Active Substance: QUINAPRIL HYDROCHLORIDE
     Dosage: 40 MG, QD
     Route: 065
  371. QUINAPRIL HYDROCHLORIDE [Interacting]
     Active Substance: QUINAPRIL HYDROCHLORIDE
     Dosage: 40 MG, QD
     Route: 065
  372. QUINAPRIL HYDROCHLORIDE [Interacting]
     Active Substance: QUINAPRIL HYDROCHLORIDE
     Dosage: 40 MG, QD
     Route: 065
  373. QUINAPRIL HYDROCHLORIDE [Interacting]
     Active Substance: QUINAPRIL HYDROCHLORIDE
     Dosage: 40 MG, QD
     Route: 065
  374. QUINAPRIL HYDROCHLORIDE [Interacting]
     Active Substance: QUINAPRIL HYDROCHLORIDE
     Dosage: 40 MG, QD
     Route: 065
  375. QUINAPRIL HYDROCHLORIDE [Interacting]
     Active Substance: QUINAPRIL HYDROCHLORIDE
     Dosage: 40 MG, QD
     Route: 065
  376. QUINAPRIL HYDROCHLORIDE [Interacting]
     Active Substance: QUINAPRIL HYDROCHLORIDE
     Dosage: 40 MG, QD
     Route: 065
  377. QUINAPRIL HYDROCHLORIDE [Interacting]
     Active Substance: QUINAPRIL HYDROCHLORIDE
     Dosage: 400 MG, QD
     Route: 065
  378. QUINAPRIL HYDROCHLORIDE [Interacting]
     Active Substance: QUINAPRIL HYDROCHLORIDE
     Dosage: 400 MG, QD
     Route: 065
  379. QUINAPRIL HYDROCHLORIDE [Interacting]
     Active Substance: QUINAPRIL HYDROCHLORIDE
     Dosage: 400 MG, QD
     Route: 065
  380. QUINAPRIL HYDROCHLORIDE [Interacting]
     Active Substance: QUINAPRIL HYDROCHLORIDE
     Dosage: 400 MG, QD
     Route: 065
  381. QUINAPRIL HYDROCHLORIDE [Interacting]
     Active Substance: QUINAPRIL HYDROCHLORIDE
     Dosage: 400 MG, QD
     Route: 065
  382. QUINAPRIL HYDROCHLORIDE [Interacting]
     Active Substance: QUINAPRIL HYDROCHLORIDE
     Dosage: 400 MG, QD
     Route: 065
  383. QUINAPRIL HYDROCHLORIDE [Interacting]
     Active Substance: QUINAPRIL HYDROCHLORIDE
     Dosage: 400 MG, QD
     Route: 065
  384. QUINAPRIL HYDROCHLORIDE [Interacting]
     Active Substance: QUINAPRIL HYDROCHLORIDE
     Dosage: 400 MG, QD
     Route: 065
  385. QUINAPRIL HYDROCHLORIDE [Interacting]
     Active Substance: QUINAPRIL HYDROCHLORIDE
     Dosage: 400 MG, QD
     Route: 065
  386. QUINAPRIL HYDROCHLORIDE [Interacting]
     Active Substance: QUINAPRIL HYDROCHLORIDE
     Indication: Pain
     Dosage: UNK
     Route: 065
  387. QUINAPRIL HYDROCHLORIDE [Interacting]
     Active Substance: QUINAPRIL HYDROCHLORIDE
     Indication: Seizure
     Dosage: UNK
     Route: 065
  388. ALBUTEROL [Interacting]
     Active Substance: ALBUTEROL
     Indication: Hypertension
     Dosage: 10 MG, QID
     Route: 065
  389. ALBUTEROL [Interacting]
     Active Substance: ALBUTEROL
     Indication: Chest pain
     Dosage: 100 MG, QD
     Route: 065
  390. ALBUTEROL [Interacting]
     Active Substance: ALBUTEROL
     Dosage: 100 MG, QD
     Route: 065
  391. ALBUTEROL [Interacting]
     Active Substance: ALBUTEROL
     Dosage: 100 MG, QD
     Route: 065
  392. ALBUTEROL [Interacting]
     Active Substance: ALBUTEROL
     Dosage: 100 MG, QD (1 EVERY 24 HOURS)
     Route: 065
  393. ALBUTEROL [Interacting]
     Active Substance: ALBUTEROL
     Dosage: 100 MG, QD (1 EVERY 24 HOURS)
     Route: 065
  394. ALBUTEROL [Interacting]
     Active Substance: ALBUTEROL
     Dosage: 100 MG
     Route: 065
  395. ALBUTEROL [Interacting]
     Active Substance: ALBUTEROL
     Dosage: 18 MG, QD
     Route: 065
  396. ALBUTEROL [Interacting]
     Active Substance: ALBUTEROL
     Dosage: 18 MG, QD
     Route: 065
  397. ALBUTEROL [Interacting]
     Active Substance: ALBUTEROL
     Dosage: 18 MG, QD
     Route: 065
  398. ALBUTEROL [Interacting]
     Active Substance: ALBUTEROL
     Dosage: 18 MG, QD
     Route: 065
  399. ALBUTEROL [Interacting]
     Active Substance: ALBUTEROL
     Dosage: 18 MG, QD
     Route: 065
  400. ALBUTEROL [Interacting]
     Active Substance: ALBUTEROL
     Dosage: 200 MG, Q12H
     Route: 065
  401. ALBUTEROL [Interacting]
     Active Substance: ALBUTEROL
     Dosage: 200 MG, Q6H
     Route: 065
  402. ALBUTEROL [Interacting]
     Active Substance: ALBUTEROL
     Dosage: 200 MG, Q6H
     Route: 065
  403. ALBUTEROL [Interacting]
     Active Substance: ALBUTEROL
     Dosage: 200 MG, Q6H
     Route: 065
  404. ALBUTEROL [Interacting]
     Active Substance: ALBUTEROL
     Dosage: 200 MG, Q6H
     Route: 065
  405. ALBUTEROL [Interacting]
     Active Substance: ALBUTEROL
     Dosage: 200 MG, Q6H
     Route: 065
  406. ALBUTEROL [Interacting]
     Active Substance: ALBUTEROL
     Dosage: 200 MG, Q6H
     Route: 065
  407. ALBUTEROL [Interacting]
     Active Substance: ALBUTEROL
     Dosage: 200 MG, Q6H
     Route: 065
  408. ALBUTEROL [Interacting]
     Active Substance: ALBUTEROL
     Dosage: 200 MG, Q6H
     Route: 065
  409. ALBUTEROL [Interacting]
     Active Substance: ALBUTEROL
     Dosage: 200 MG, Q6H
     Route: 065
  410. ALBUTEROL [Interacting]
     Active Substance: ALBUTEROL
     Dosage: 200 MG, Q8H
     Route: 065
  411. ALBUTEROL [Interacting]
     Active Substance: ALBUTEROL
     Dosage: 200 MG, Q8H
     Route: 065
  412. ALBUTEROL [Interacting]
     Active Substance: ALBUTEROL
     Dosage: 200 MG, Q8H
     Route: 065
  413. ALBUTEROL [Interacting]
     Active Substance: ALBUTEROL
     Dosage: 200 MG, Q8H
     Route: 065
  414. ALBUTEROL [Interacting]
     Active Substance: ALBUTEROL
     Dosage: 200 MG, Q8H
     Route: 065
  415. ALBUTEROL [Interacting]
     Active Substance: ALBUTEROL
     Dosage: 200 MG, Q8H
     Route: 065
  416. ALBUTEROL [Interacting]
     Active Substance: ALBUTEROL
     Indication: Angina pectoris
     Dosage: 200 UG (1 EVERY 12 HOURS)
     Route: 065
  417. ALBUTEROL [Interacting]
     Active Substance: ALBUTEROL
     Dosage: 200 UG, 1 EVERY 6 HOURS
     Route: 065
  418. ALBUTEROL [Interacting]
     Active Substance: ALBUTEROL
     Dosage: 400 MG, QD
     Route: 065
  419. ALBUTEROL [Interacting]
     Active Substance: ALBUTEROL
     Dosage: 400 MG, QD
     Route: 065
  420. ALBUTEROL [Interacting]
     Active Substance: ALBUTEROL
     Dosage: 400 MG, QD
     Route: 065
  421. ALBUTEROL [Interacting]
     Active Substance: ALBUTEROL
     Dosage: 400 MG, QD
     Route: 065
  422. ALBUTEROL [Interacting]
     Active Substance: ALBUTEROL
     Dosage: 400 MG, QD (1 EVERY 24 HOURS)
     Route: 065
  423. ALBUTEROL [Interacting]
     Active Substance: ALBUTEROL
     Dosage: 400 MG, Q6H
     Route: 065
  424. ALBUTEROL [Interacting]
     Active Substance: ALBUTEROL
     Dosage: 400 MG, Q6H
     Route: 065
  425. ALBUTEROL [Interacting]
     Active Substance: ALBUTEROL
     Dosage: 400 MG, Q6H
     Route: 065
  426. ALBUTEROL [Interacting]
     Active Substance: ALBUTEROL
     Dosage: 400 MG, Q6H
     Route: 065
  427. ALBUTEROL [Interacting]
     Active Substance: ALBUTEROL
     Dosage: 400 MG, Q6H
     Route: 065
  428. ALBUTEROL [Interacting]
     Active Substance: ALBUTEROL
     Dosage: 800 MG, QD
     Route: 065
  429. ALBUTEROL [Interacting]
     Active Substance: ALBUTEROL
     Dosage: 800 MG, QD
     Route: 065
  430. ALBUTEROL [Interacting]
     Active Substance: ALBUTEROL
     Dosage: 800 MG, QD
     Route: 065
  431. ALBUTEROL [Interacting]
     Active Substance: ALBUTEROL
     Dosage: 800 MG, QD
     Route: 065
  432. ALBUTEROL [Interacting]
     Active Substance: ALBUTEROL
     Dosage: 800 MG, QD (1 EVERY 24 HOURS)
     Route: 065
  433. ALBUTEROL [Interacting]
     Active Substance: ALBUTEROL
     Indication: Coronary artery disease
     Dosage: UNK
     Route: 065
  434. ALBUTEROL [Interacting]
     Active Substance: ALBUTEROL
     Dosage: UNK
     Route: 065
  435. ALBUTEROL [Interacting]
     Active Substance: ALBUTEROL
     Dosage: UNK
     Route: 065
  436. ALBUTEROL [Interacting]
     Active Substance: ALBUTEROL
     Dosage: UNK
     Route: 065
  437. ALBUTEROL [Interacting]
     Active Substance: ALBUTEROL
     Dosage: UNK
     Route: 065
  438. TIOTROPIUM BROMIDE MONOHYDRATE [Interacting]
     Active Substance: TIOTROPIUM BROMIDE MONOHYDRATE
     Indication: Chronic obstructive pulmonary disease
     Dosage: 18 MG, QD
     Route: 065
  439. TIOTROPIUM BROMIDE MONOHYDRATE [Interacting]
     Active Substance: TIOTROPIUM BROMIDE MONOHYDRATE
     Indication: Asthma
     Dosage: UNK
     Route: 065
  440. TIOTROPIUM BROMIDE MONOHYDRATE [Interacting]
     Active Substance: TIOTROPIUM BROMIDE MONOHYDRATE
     Dosage: UNK
     Route: 065
  441. CRANBERRY [Interacting]
     Active Substance: CRANBERRY
     Dosage: 500 MG
     Route: 065
  442. CRANBERRY [Interacting]
     Active Substance: CRANBERRY
     Dosage: 500 MG (1 EVERY 8 HOURS)
     Route: 065
  443. CRANBERRY [Interacting]
     Active Substance: CRANBERRY
     Indication: Bladder disorder
     Dosage: UNK
     Route: 065
  444. CRANBERRY [Interacting]
     Active Substance: CRANBERRY
     Dosage: UNK
     Route: 065

REACTIONS (8)
  - Cognitive disorder [Recovered/Resolved]
  - Balance disorder [Recovered/Resolved]
  - Orthostatic hypotension [Recovered/Resolved]
  - Toxicity to various agents [Recovered/Resolved]
  - Sedation [Recovered/Resolved]
  - Constipation [Recovered/Resolved]
  - Fall [Recovered/Resolved]
  - Hypotension [Recovered/Resolved]
